FAERS Safety Report 14882384 (Version 2)
Quarter: 2018Q3

REPORT INFORMATION
  Report Type: Spontaneous
  Country: US (occurrence: US)
  Receive Date: 20180511
  Receipt Date: 20180723
  Transmission Date: 20181010
  Serious: Yes (Other)
  Sender: FDA-Public Use
  Company Number: US-ELI_LILLY_AND_COMPANY-US201804007230

PATIENT
  Sex: Female

DRUGS (10)
  1. TALTZ [Suspect]
     Active Substance: IXEKIZUMAB
     Dosage: 80 MG, EVERY TWO WEEKS
     Route: 065
     Dates: start: 20180614
  2. ALLEGRA [Concomitant]
     Active Substance: FEXOFENADINE HYDROCHLORIDE
     Indication: PRODUCT USED FOR UNKNOWN INDICATION
     Dosage: 1 DF, DAILY
     Route: 065
  3. TALTZ [Suspect]
     Active Substance: IXEKIZUMAB
     Dosage: 80 MG, EVERY TWO WEEKS
     Route: 065
     Dates: start: 20180208
  4. TALTZ [Suspect]
     Active Substance: IXEKIZUMAB
     Dosage: 80 MG, EVERY TWO WEEKS
     Route: 065
     Dates: start: 20180322
  5. TALTZ [Suspect]
     Active Substance: IXEKIZUMAB
     Dosage: 80 MG, EVERY TWO WEEKS
     Route: 065
     Dates: start: 20180407
  6. TALTZ [Suspect]
     Active Substance: IXEKIZUMAB
     Dosage: 80 MG, EVERY TWO WEEKS
     Route: 065
     Dates: start: 20180517
  7. TALTZ [Suspect]
     Active Substance: IXEKIZUMAB
     Dosage: 80 MG, EVERY TWO WEEKS
     Route: 065
     Dates: start: 20180308
  8. TALTZ [Suspect]
     Active Substance: IXEKIZUMAB
     Dosage: 80 MG, EVERY TWO WEEKS
     Route: 065
     Dates: start: 20180419
  9. TALTZ [Suspect]
     Active Substance: IXEKIZUMAB
     Indication: PRODUCT USED FOR UNKNOWN INDICATION
     Dosage: 160 MG, FIRST DOSE
     Route: 065
     Dates: start: 20180118
  10. TALTZ [Suspect]
     Active Substance: IXEKIZUMAB
     Dosage: 80 MG, EVERY TWO WEEKS
     Route: 065
     Dates: start: 20180222

REACTIONS (7)
  - Erythema [Unknown]
  - Swelling face [Unknown]
  - Cellulitis [Unknown]
  - Inappropriate schedule of drug administration [Unknown]
  - Hypersensitivity [Unknown]
  - Ear swelling [Unknown]
  - Feeling hot [Unknown]

NARRATIVE: CASE EVENT DATE: 20180306
